FAERS Safety Report 16692660 (Version 14)
Quarter: 2019Q4

REPORT INFORMATION
  Report Type: Report from Study
  Country: US (occurrence: US)
  Receive Date: 20190812
  Receipt Date: 20191127
  Transmission Date: 20200122
  Serious: Yes (Hospitalization)
  Sender: FDA-Public Use
  Company Number: US-EISAI MEDICAL RESEARCH-EC-2019-060431

PATIENT
  Age: 61 Year
  Sex: Female
  Weight: 62.5 kg

DRUGS (14)
  1. ZOFRAN [Concomitant]
     Active Substance: ONDANSETRON HYDROCHLORIDE
     Dates: start: 20190326
  2. NORCO [Concomitant]
     Active Substance: ACETAMINOPHEN\HYDROCODONE BITARTRATE
     Dates: start: 20190423
  3. PEMBROLIZUMAB. [Suspect]
     Active Substance: PEMBROLIZUMAB
     Route: 041
     Dates: start: 20190604, end: 20190604
  4. PIRBUTEROL ACETATE [Concomitant]
     Active Substance: PIRBUTEROL ACETATE
     Dates: start: 200701
  5. BENADRYL [Concomitant]
     Active Substance: DIPHENHYDRAMINE HYDROCHLORIDE
     Dates: start: 20190604, end: 20190807
  6. PEMBROLIZUMAB. [Suspect]
     Active Substance: PEMBROLIZUMAB
     Route: 041
     Dates: start: 20190625, end: 20190716
  7. LENVATINIB [Suspect]
     Active Substance: LENVATINIB
     Indication: ENDOMETRIAL CANCER
     Dosage: STARTING DOSE AT 20 MG, FLUCTUATED DOSAGE
     Route: 048
     Dates: start: 20190312, end: 20190603
  8. IBUPROFEN. [Concomitant]
     Active Substance: IBUPROFEN
     Dates: start: 20190516
  9. LENVATINIB [Suspect]
     Active Substance: LENVATINIB
     Route: 048
     Dates: start: 20190604, end: 20190625
  10. SALIVAMAX [Concomitant]
     Dates: start: 20190524, end: 20190827
  11. LENVATINIB [Suspect]
     Active Substance: LENVATINIB
     Route: 048
     Dates: start: 20190717, end: 20190805
  12. PEMBROLIZUMAB. [Suspect]
     Active Substance: PEMBROLIZUMAB
     Indication: ENDOMETRIAL CANCER
     Route: 041
     Dates: start: 20190312, end: 20190516
  13. SYMBICORT [Concomitant]
     Active Substance: BUDESONIDE\FORMOTEROL FUMARATE DIHYDRATE
     Dates: start: 200701
  14. FLEXERIL [Concomitant]
     Active Substance: CYCLOBENZAPRINE HYDROCHLORIDE
     Dates: start: 20190423

REACTIONS (1)
  - Myalgia [Recovering/Resolving]

NARRATIVE: CASE EVENT DATE: 20190620
